FAERS Safety Report 15414501 (Version 2)
Quarter: 2021Q4

REPORT INFORMATION
  Report Type: Spontaneous
  Country: US (occurrence: None)
  Receive Date: 20180921
  Receipt Date: 20211110
  Transmission Date: 20220303
  Serious: Yes (Hospitalization, Disabling)
  Sender: FDA-Public Use
  Company Number: 2018SF16609

PATIENT
  Age: 39 Year
  Sex: Female
  Weight: 62.6 kg

DRUGS (4)
  1. PRILOSEC [Suspect]
     Active Substance: OMEPRAZOLE MAGNESIUM
     Indication: Abdominal discomfort
     Dosage: 20MG CAPSULE ONCE DAILY BY MOUTH
     Route: 048
  2. PROTONIX [Suspect]
     Active Substance: PANTOPRAZOLE SODIUM
     Indication: Abdominal discomfort
     Dosage: 40MG CAPSULE ONCE DAILY BY MOUTH
     Route: 048
     Dates: start: 201803, end: 20180720
  3. CITALOPRAM [Concomitant]
     Active Substance: CITALOPRAM HYDROBROMIDE
     Indication: Depression
     Dosage: 20MG TABLET ONCE DAILY BY MOUTH
     Route: 048
     Dates: start: 2005
  4. CITALOPRAM [Concomitant]
     Active Substance: CITALOPRAM HYDROBROMIDE
     Indication: Anxiety
     Dosage: 20MG TABLET ONCE DAILY BY MOUTH
     Route: 048
     Dates: start: 2005

REACTIONS (9)
  - Muscle spasms [Not Recovered/Not Resolved]
  - Fall [Unknown]
  - Muscular weakness [Unknown]
  - Fatigue [Not Recovered/Not Resolved]
  - Feeling abnormal [Not Recovered/Not Resolved]
  - Pain in extremity [Not Recovered/Not Resolved]
  - Gait disturbance [Not Recovered/Not Resolved]
  - Asthenia [Unknown]
  - Gait inability [Unknown]

NARRATIVE: CASE EVENT DATE: 20180301
